FAERS Safety Report 7829478-8 (Version None)
Quarter: 2011Q4

REPORT INFORMATION
  Report Type: 
  Country: None (occurrence: None)
  Receive Date: 20111020
  Receipt Date: 20110921
  Transmission Date: 20120403
  Serious: Yes (Other)
  Sender: FDA-Public Use
  Company Number: CA-ROCHE-GNE324620

PATIENT
  Sex: Female

DRUGS (1)
  1. LUCENTIS [Suspect]
     Indication: PRODUCT USED FOR UNKNOWN INDICATION
     Dosage: 0.5 MG, UNKNOWN
     Route: 050
     Dates: start: 20110408

REACTIONS (6)
  - OCULAR HYPERAEMIA [None]
  - EYE HAEMORRHAGE [None]
  - VISUAL IMPAIRMENT [None]
  - SCOTOMA [None]
  - EYE IRRITATION [None]
  - CHOROIDAL NEOVASCULARISATION [None]
